FAERS Safety Report 6494642-X (Version None)
Quarter: 2009Q4

REPORT INFORMATION
  Report Type: 
  Country: None (occurrence: None)
  Receive Date: 20091214
  Receipt Date: 20090311
  Transmission Date: 20100525
  Serious: No
  Sender: FDA-Public Use
  Company Number: US-BRISTOL-MYERS SQUIBB COMPANY-14539894

PATIENT
  Age: 61 Year
  Sex: Male
  Weight: 91 kg

DRUGS (7)
  1. ABILIFY [Suspect]
     Indication: BIPOLAR DISORDER
     Dosage: DOSAGE INCREASED TO 15MG
     Dates: start: 20090120
  2. GLYBURIDE [Concomitant]
  3. ACTOS [Concomitant]
  4. ZETIA [Concomitant]
  5. CRESTOR [Concomitant]
  6. LAMICTAL [Concomitant]
  7. HUMULIN N [Concomitant]
     Dosage: HUMULIN N INSULIN

REACTIONS (5)
  - AMNESIA [None]
  - BLOOD GLUCOSE INCREASED [None]
  - DISTURBANCE IN ATTENTION [None]
  - GAIT DISTURBANCE [None]
  - HEADACHE [None]
